FAERS Safety Report 7745392-0 (Version None)
Quarter: 2011Q3

REPORT INFORMATION
  Report Type: 
  Country: None (occurrence: None)
  Receive Date: 20110825
  Receipt Date: 20110517
  Transmission Date: 20111222
  Serious: No
  Sender: FDA-Public Use
  Company Number: 329007

PATIENT
  Age: 68 Year
  Sex: Female

DRUGS (2)
  1. METFORMIN HCL [Concomitant]
  2. VICTOZA [Suspect]
     Indication: OVERWEIGHT
     Dosage: SUBCUTANEOUS
     Route: 058
     Dates: start: 20110301

REACTIONS (3)
  - ABDOMINAL DISCOMFORT [None]
  - DIARRHOEA [None]
  - ABDOMINAL PAIN UPPER [None]
